FAERS Safety Report 9507288 (Version 4)
Quarter: 2013Q4

REPORT INFORMATION
  Report Type: Spontaneous
  Country: JP (occurrence: JP)
  Receive Date: 20130909
  Receipt Date: 20131004
  Transmission Date: 20140711
  Serious: Yes (Disabling, Other)
  Sender: FDA-Public Use
  Company Number: JP-OTSUKA-JP-2013-12154

PATIENT
  Age: 58 Year
  Sex: Male
  Weight: 72.4 kg

DRUGS (10)
  1. SAMSCA [Suspect]
     Indication: RIGHT VENTRICULAR FAILURE
     Dosage: 3.75 MG MILLIGRAM(S), QD
     Route: 048
     Dates: start: 20130531, end: 20130602
  2. VOLIBRIS [Suspect]
     Indication: PULMONARY ARTERIAL HYPERTENSION
     Dosage: 2.5 MG MILLIGRAM(S), QD
     Route: 048
     Dates: start: 20121218, end: 20130604
  3. URSO [Concomitant]
     Indication: HEPATIC CIRRHOSIS
     Dosage: 200 MG MILLIGRAM(S), TID
     Route: 048
  4. LIVACT [Concomitant]
     Indication: HEPATIC CIRRHOSIS
     Dosage: 4.15 G GRAM(S), TID
     Route: 048
  5. PARIET [Concomitant]
     Indication: PROPHYLAXIS AGAINST GASTROINTESTINAL ULCER
     Dosage: 10 MG MILLIGRAM(S), QD
     Route: 048
     Dates: start: 20121020
  6. ADCIRCA [Concomitant]
     Indication: PULMONARY ARTERIAL HYPERTENSION
     Dosage: 20 MG MILLIGRAM(S), BID
     Route: 048
     Dates: start: 20121213
  7. LASIX [Concomitant]
     Indication: RIGHT VENTRICULAR FAILURE
     Dosage: 60 MG MILLIGRAM(S), DAILY DOSE
     Route: 048
     Dates: start: 20121221, end: 20130522
  8. LASIX [Concomitant]
     Indication: HEPATIC CIRRHOSIS
     Dosage: 40 MG MILLIGRAM(S), BID
     Route: 048
     Dates: start: 20130523, end: 20130608
  9. ALDACTONE A [Concomitant]
     Indication: RIGHT VENTRICULAR FAILURE
     Dosage: 50 MG MILLIGRAM(S), QD
     Route: 048
     Dates: start: 20121221
  10. ALDACTONE A [Concomitant]
     Indication: HEPATIC CIRRHOSIS

REACTIONS (3)
  - Blood bilirubin increased [Recovering/Resolving]
  - Bile duct stone [Unknown]
  - Abdominal pain upper [Unknown]
